FAERS Safety Report 24206406 (Version 1)
Quarter: 2024Q3

REPORT INFORMATION
  Report Type: Spontaneous
  Country: DK (occurrence: DK)
  Receive Date: 20240813
  Receipt Date: 20240813
  Transmission Date: 20241017
  Serious: Yes (Hospitalization, Other)
  Sender: TEVA
  Company Number: None

PATIENT
  Age: 65 Year
  Sex: Male

DRUGS (3)
  1. CHLORDIAZEPOXIDE [Suspect]
     Active Substance: CHLORDIAZEPOXIDE
     Indication: Alcohol withdrawal syndrome
     Dosage: STRENGTH: UNKNOWN.?DOSAGE: THE PATIENT RECEIVED 200 MG DURING THE FIRST DAY, 300 MG ON THE SECOND...
     Route: 048
     Dates: start: 20240716, end: 20240719
  2. CITALOPRAM [Concomitant]
     Active Substance: CITALOPRAM\CITALOPRAM HYDROBROMIDE
     Indication: Crying
     Route: 065
     Dates: start: 20151210
  3. MIRTAZAPINE [Concomitant]
     Active Substance: MIRTAZAPINE
     Indication: Depression
     Route: 065
     Dates: start: 20210219

REACTIONS (4)
  - Acute respiratory failure [Recovering/Resolving]
  - Tachycardia [Unknown]
  - Dyspnoea [Unknown]
  - Fatigue [Recovering/Resolving]

NARRATIVE: CASE EVENT DATE: 20240701
